FAERS Safety Report 14161689 (Version 1)
Quarter: 2017Q4

REPORT INFORMATION
  Report Type: Spontaneous
  Country: US (occurrence: US)
  Receive Date: 20171105
  Receipt Date: 20171105
  Transmission Date: 20180321
  Serious: Yes (Death)
  Sender: FDA-Public Use
  Company Number: None

PATIENT
  Age: 65 Year
  Sex: Male
  Weight: 72 kg

DRUGS (22)
  1. ALLOPURINOL. [Concomitant]
     Active Substance: ALLOPURINOL
  2. SULFAMETHIOXAZOLE/TRIMETHOPRIM [Concomitant]
  3. PIPERACILLIN/TAZOBACTAM [Concomitant]
     Active Substance: PIPERACILLIN SODIUM\TAZOBACTAM SODIUM
  4. PROMETHAZINE [Concomitant]
     Active Substance: PROMETHAZINE\PROMETHAZINE HYDROCHLORIDE
  5. AUGMENTIN [Concomitant]
     Active Substance: AMOXICILLIN\CLAVULANATE POTASSIUM
  6. PROCHLORPERAZINE. [Concomitant]
     Active Substance: PROCHLORPERAZINE
  7. FLUDARABINE [Concomitant]
     Active Substance: FLUDARABINE PHOSPHATE
  8. DIPHENHYDRAMINE. [Concomitant]
     Active Substance: DIPHENHYDRAMINE
  9. PREDNISONE. [Concomitant]
     Active Substance: PREDNISONE
  10. OXYCODONE [Concomitant]
     Active Substance: OXYCODONE
  11. ACYCLOVIR. [Concomitant]
     Active Substance: ACYCLOVIR
  12. CALCIUM CARBONATE. [Concomitant]
     Active Substance: CALCIUM CARBONATE
  13. LIPOSOMAL AMPHOTERICIN B [Suspect]
     Active Substance: AMPHOTERICIN B
     Indication: FUNGAEMIA
     Route: 042
     Dates: start: 20171021
  14. MICAFUNGIN [Concomitant]
     Active Substance: MICAFUNGIN
  15. ETOPOSIDE. [Concomitant]
     Active Substance: ETOPOSIDE
  16. VANCOMYCIN [Concomitant]
     Active Substance: VANCOMYCIN
  17. CLOFARABINE. [Concomitant]
     Active Substance: CLOFARABINE
  18. HYDROCORTISONE. [Concomitant]
     Active Substance: HYDROCORTISONE
  19. POTASSIUM CHLORIDE WITH MAGNESIUM [Concomitant]
  20. TRAZODONE [Concomitant]
     Active Substance: TRAZODONE HYDROCHLORIDE
  21. CYTARABINE. [Concomitant]
     Active Substance: CYTARABINE
  22. FILGRAST IM [Concomitant]

REACTIONS (9)
  - Fluid overload [None]
  - Respiratory failure [None]
  - Electrocardiogram QT prolonged [None]
  - Chest pain [None]
  - Pneumonia [None]
  - Cardiac arrest [None]
  - Haemoptysis [None]
  - Hypotension [None]
  - Neutrophil count decreased [None]

NARRATIVE: CASE EVENT DATE: 20171021
